FAERS Safety Report 7536760-0 (Version None)
Quarter: 2011Q2

REPORT INFORMATION
  Report Type: 
  Country: None (occurrence: None)
  Receive Date: 20110603
  Receipt Date: 20110518
  Transmission Date: 20111010
  Serious: Yes (Other)
  Sender: FDA-Public Use
  Company Number: 2011MA005604

PATIENT
  Age: 6 Month
  Sex: Male
  Weight: 8.11 kg

DRUGS (2)
  1. PREDNICARBATE [Concomitant]
  2. CLOBETASOL PROPIONATE [Suspect]
     Indication: DERMATITIS DIAPER

REACTIONS (7)
  - ALANINE AMINOTRANSFERASE INCREASED [None]
  - RESPIRATORY RATE INCREASED [None]
  - WEIGHT INCREASED [None]
  - HEART RATE INCREASED [None]
  - INCREASED APPETITE [None]
  - CUSHINGOID [None]
  - OBESITY [None]
